FAERS Safety Report 6999489-3 (Version None)
Quarter: 2010Q3

REPORT INFORMATION
  Report Type: 
  Country: None (occurrence: None)
  Receive Date: 20100920
  Receipt Date: 20091103
  Transmission Date: 20110219
  Serious: Yes (Hospitalization)
  Sender: FDA-Public Use
  Company Number: US-ASTRAZENECA-2007UW18556

PATIENT
  Age: 13715 Day
  Sex: Male
  Weight: 145.1 kg

DRUGS (14)
  1. SEROQUEL [Suspect]
     Indication: BIPOLAR DISORDER
     Dosage: DOSE-25MG-100MG DAILY
     Route: 048
     Dates: start: 20020524
  2. SEROQUEL [Suspect]
     Route: 048
     Dates: start: 20040101, end: 20070101
  3. SEROQUEL [Suspect]
     Route: 048
     Dates: start: 20041004
  4. AMBIEN [Concomitant]
     Dates: start: 20020524
  5. BUSPAR [Concomitant]
     Dosage: STRENGTH-15MG, 30MG  DOSE-15MG-90MG DAILY
     Route: 048
     Dates: start: 20011121
  6. LITHIUM CARBONATE [Concomitant]
     Dates: start: 20020524
  7. CELEXA [Concomitant]
     Dates: start: 20020524
  8. NEURONTIN [Concomitant]
     Dosage: DOSE-300MG-900MG DAILY
     Route: 048
     Dates: start: 20011121
  9. TRAZODONE HCL [Concomitant]
     Route: 048
     Dates: start: 20020516
  10. SIMVASTATIN [Concomitant]
     Dates: start: 20041004
  11. GABAPENTIN [Concomitant]
     Dates: start: 20041004
  12. BUPROPION [Concomitant]
     Dates: start: 20041004
  13. MECLIZINE [Concomitant]
     Dates: start: 20041004
  14. WARFARIN [Concomitant]
     Dates: start: 20041004

REACTIONS (3)
  - DIABETES MELLITUS [None]
  - DIABETIC KETOACIDOSIS [None]
  - TYPE 2 DIABETES MELLITUS [None]
